FAERS Safety Report 8465064-7 (Version None)
Quarter: 2012Q2

REPORT INFORMATION
  Report Type: 
  Country: None (occurrence: None)
  Receive Date: 20120626
  Receipt Date: 20120618
  Transmission Date: 20120825
  Serious: Yes (Hospitalization)
  Sender: FDA-Public Use
  Company Number: US-BAYER-2012-061005

PATIENT
  Age: 43 Year
  Sex: Female
  Weight: 99 kg

DRUGS (10)
  1. NAPROXEN [Concomitant]
     Dosage: 550 MG, UNK
     Dates: start: 20050926
  2. OMEPRAZOLE [Concomitant]
     Dosage: 20 MG DAILY
     Dates: start: 20050922
  3. CYCLOBENZAPRINE [Concomitant]
     Dosage: 10 MG, UNK
     Dates: start: 20050926
  4. PROPOXYPHENE/ NAPROXEN/ ACETAMINOPHEN. [Concomitant]
     Dosage: 100/650 MG
     Route: 048
     Dates: start: 20050926
  5. THYROID TAB [Concomitant]
     Dosage: 60 MG DAILY
     Dates: start: 20051005
  6. ZIAC [Concomitant]
  7. YASMIN [Suspect]
  8. BISOPROLOL FUMARATE AND HYDROCHLOROTHIAZIDE [Concomitant]
     Dosage: 10 MG/6.25 DAILY
     Route: 048
     Dates: start: 20050725
  9. FUROSEMIDE [Concomitant]
     Dosage: 40 MG, UNK
     Dates: start: 20050930
  10. QUININE SULFATE [Concomitant]
     Dosage: 260 MG, UNK
     Route: 048
     Dates: start: 20050930

REACTIONS (2)
  - PULMONARY EMBOLISM [None]
  - THROMBOPHLEBITIS [None]
